FAERS Safety Report 9059088 (Version 1)
Quarter: 2013Q1

REPORT INFORMATION
  Report Type: Spontaneous
  Country: US (occurrence: US)
  Receive Date: 20130211
  Receipt Date: 20130211
  Transmission Date: 20140127
  Serious: No
  Sender: FDA-Public Use
  Company Number: US-BRISTOL-MYERS SQUIBB COMPANY-16775124

PATIENT
  Age: 61 Year
  Sex: Female
  Weight: 92.97 kg

DRUGS (4)
  1. GLUCOPHAGE [Suspect]
     Indication: DIABETES MELLITUS
  2. PROCARDIA XL [Suspect]
     Indication: BLOOD PRESSURE MANAGEMENT
     Dosage: STARTED WITH 30MG
  3. BABY ASPIRIN [Concomitant]
  4. LISINOPRIL [Concomitant]
     Indication: BLOOD PRESSURE MANAGEMENT

REACTIONS (2)
  - Renal disorder [Unknown]
  - Weight increased [Unknown]
